FAERS Safety Report 12707668 (Version 5)
Quarter: 2016Q4

REPORT INFORMATION
  Report Type: Report from Study
  Country: US (occurrence: US)
  Receive Date: 20160901
  Receipt Date: 20161214
  Transmission Date: 20170207
  Serious: Yes (Hospitalization)
  Sender: FDA-Public Use
  Company Number: PHEH2016US021808

PATIENT
  Sex: Female

DRUGS (1)
  1. TASIGNA [Suspect]
     Active Substance: NILOTINIB
     Indication: PRODUCT USED FOR UNKNOWN INDICATION
     Route: 065

REACTIONS (9)
  - Syncope [Unknown]
  - Pain in extremity [Unknown]
  - Asthenia [Unknown]
  - Pleural effusion [Unknown]
  - Myocardial infarction [Unknown]
  - Spinal column stenosis [Unknown]
  - Nausea [Unknown]
  - Back pain [Unknown]
  - Vascular occlusion [Unknown]
